FAERS Safety Report 12527577 (Version 1)
Quarter: 2016Q3

REPORT INFORMATION
  Report Type: Report from Study
  Country: US (occurrence: US)
  Receive Date: 20160705
  Receipt Date: 20160705
  Transmission Date: 20161109
  Serious: Yes (Hospitalization)
  Sender: FDA-Public Use
  Company Number: US-ROCHE-1703993

PATIENT
  Age: 45 Year
  Sex: Male
  Weight: 55.5 kg

DRUGS (18)
  1. ALBUTEROL. [Concomitant]
     Active Substance: ALBUTEROL
     Dosage: ACTUATION INHALER?2 PUFF PRN
     Route: 065
  2. PROMETHAZINE [Concomitant]
     Active Substance: PROMETHAZINE\PROMETHAZINE HYDROCHLORIDE
     Dosage: 6.25 MG / 5 ML SYRUP?PRN
     Route: 065
  3. CLONIDINE. [Concomitant]
     Active Substance: CLONIDINE
     Route: 065
  4. HALDOL [Concomitant]
     Active Substance: HALOPERIDOL
  5. DILAUDID [Concomitant]
     Active Substance: HYDROMORPHONE HYDROCHLORIDE
     Route: 042
  6. ASPIRIN. [Concomitant]
     Active Substance: ASPIRIN
     Route: 065
  7. VISMODEGIB [Suspect]
     Active Substance: VISMODEGIB
     Indication: BASAL CELL CARCINOMA
     Route: 048
     Dates: start: 20160107, end: 20160622
  8. CINACALCET [Concomitant]
     Active Substance: CINACALCET
     Route: 065
  9. LABETALOL [Concomitant]
     Active Substance: LABETALOL\LABETALOL HYDROCHLORIDE
     Route: 065
  10. MINOXIDIL. [Concomitant]
     Active Substance: MINOXIDIL
     Route: 065
  11. HEPARIN [Concomitant]
     Active Substance: HEPARIN SODIUM
     Dosage: 25000 UNIT PER 250 ML DSW (100 UNIT/ML)
     Route: 042
  12. TYLENOL [Concomitant]
     Active Substance: ACETAMINOPHEN
     Route: 048
  13. CATAPRES [Concomitant]
     Active Substance: CLONIDINE HYDROCHLORIDE
     Route: 048
     Dates: end: 20160610
  14. RENAGEL [Concomitant]
     Active Substance: SEVELAMER HYDROCHLORIDE
     Route: 048
  15. CARDIZEM [Concomitant]
     Active Substance: DILTIAZEM HYDROCHLORIDE
     Route: 065
  16. NIFEDIPINE. [Concomitant]
     Active Substance: NIFEDIPINE
     Route: 065
  17. SODIUM CHLORIDE. [Concomitant]
     Active Substance: SODIUM CHLORIDE
     Dosage: 2.5 MG PER HOUR
     Route: 042
  18. DILAUDID [Concomitant]
     Active Substance: HYDROMORPHONE HYDROCHLORIDE
     Route: 042

REACTIONS (2)
  - Cardiac failure congestive [Unknown]
  - Dyspnoea [Unknown]

NARRATIVE: CASE EVENT DATE: 20160125
